FAERS Safety Report 12564149 (Version 1)
Quarter: 2016Q3

REPORT INFORMATION
  Report Type: Spontaneous
  Country: US (occurrence: US)
  Receive Date: 20160718
  Receipt Date: 20160718
  Transmission Date: 20161109
  Serious: No
  Sender: FDA-Public Use
  Company Number: US-ALARA PHARMACEUTICAL CORPORATION-1055161

PATIENT
  Age: 78 Year
  Sex: Female

DRUGS (9)
  1. NEURONTIN [Concomitant]
     Active Substance: GABAPENTIN
  2. RITALIN [Concomitant]
     Active Substance: METHYLPHENIDATE HYDROCHLORIDE
  3. CYMBALTA [Concomitant]
     Active Substance: DULOXETINE HYDROCHLORIDE
  4. RESTORIL [Concomitant]
     Active Substance: TEMAZEPAM
  5. LEVO-T [Suspect]
     Active Substance: LEVOTHYROXINE SODIUM
     Indication: HYPOTHYROIDISM
  6. KLONOPIN [Concomitant]
     Active Substance: CLONAZEPAM
  7. SEROQUEL [Concomitant]
     Active Substance: QUETIAPINE FUMARATE
  8. THERAQUIL [Concomitant]
  9. DULOXETINE. [Concomitant]
     Active Substance: DULOXETINE

REACTIONS (1)
  - Alopecia [Not Recovered/Not Resolved]
